FAERS Safety Report 22283294 (Version 3)
Quarter: 2024Q1

REPORT INFORMATION
  Report Type: Report from Study
  Country: CA (occurrence: CA)
  Receive Date: 20230504
  Receipt Date: 20240228
  Transmission Date: 20240410
  Serious: Yes (Other)
  Sender: FDA-Public Use
  Company Number: CA-BAUSCH-BL-2022-014864

PATIENT
  Age: 56 Year
  Sex: Female
  Weight: 90.703 kg

DRUGS (8)
  1. CONTRAVE [Suspect]
     Active Substance: BUPROPION HYDROCHLORIDE\NALTREXONE HYDROCHLORIDE
     Indication: Weight control
     Dosage: 90/8 MG FIRST ATTEMPT
     Route: 048
     Dates: start: 2020, end: 2020
  2. CONTRAVE [Suspect]
     Active Substance: BUPROPION HYDROCHLORIDE\NALTREXONE HYDROCHLORIDE
     Dosage: 90/8 MG, FIRST ATTEMPT (2 DOSAGE FORMS, 1 IN 12 HR)
     Route: 048
     Dates: start: 20200903
  3. CONTRAVE [Suspect]
     Active Substance: BUPROPION HYDROCHLORIDE\NALTREXONE HYDROCHLORIDE
     Dosage: 90/8 MG, FIRST ATTEMPT
     Route: 048
  4. CONTRAVE [Suspect]
     Active Substance: BUPROPION HYDROCHLORIDE\NALTREXONE HYDROCHLORIDE
     Dosage: 90/8 MG, FIRST ATTEMPT (2 DOSAGE FORMS, 1 IN 12 HR)
     Route: 048
     Dates: end: 202204
  5. CONTRAVE [Suspect]
     Active Substance: BUPROPION HYDROCHLORIDE\NALTREXONE HYDROCHLORIDE
     Dosage: 90/8 MG, SECOND ATTEMPT, 2 TAB Q AM, 2 TAB Q PM
     Route: 048
     Dates: end: 2023
  6. CONTRAVE [Suspect]
     Active Substance: BUPROPION HYDROCHLORIDE\NALTREXONE HYDROCHLORIDE
     Dosage: 90/8 MG, THIRD ATTEMPT, 2 TAB Q AM, 2 TAB Q PM
     Route: 048
     Dates: start: 20230416
  7. NAPROXEN [Concomitant]
     Active Substance: NAPROXEN
     Indication: Pain
     Dosage: 1 IN 1 D
     Route: 048
  8. SAXENDA [Concomitant]
     Active Substance: LIRAGLUTIDE
     Indication: Product used for unknown indication
     Dosage: UNK

REACTIONS (12)
  - Breast operation [Unknown]
  - Symptom recurrence [Recovered/Resolved]
  - Hunger [Recovered/Resolved]
  - Food craving [Recovered/Resolved]
  - Constipation [Not Recovered/Not Resolved]
  - Nightmare [Recovered/Resolved]
  - Abnormal dreams [Recovered/Resolved]
  - Nausea [Recovered/Resolved]
  - Therapy interrupted [Unknown]
  - Intentional product use issue [Unknown]
  - Product use issue [Unknown]
  - Patient dissatisfaction with treatment [Unknown]

NARRATIVE: CASE EVENT DATE: 20200901
